FAERS Safety Report 8842776 (Version 1)
Quarter: 2012Q4

REPORT INFORMATION
  Report Type: 
  Country: NL (occurrence: NL)
  Receive Date: 20121016
  Receipt Date: 20121016
  Transmission Date: 20130627
  Serious: Yes (Death, Life-Threatening, Hospitalization, Other)
  Sender: FDA-Public Use
  Company Number: NL-ELI_LILLY_AND_COMPANY-EWC990202785

PATIENT
  Sex: Female

DRUGS (4)
  1. ZYPREXA [Suspect]
     Indication: AFFECTIVE DISORDER
     Dosage: 5 mg, daily (1/D)
     Route: 048
     Dates: start: 19980818
  2. CLOMIPRAMINE [Concomitant]
     Dosage: 10 mg, daily (1/D)
  3. LITHIUM CARBONATE [Concomitant]
     Dosage: 100 mg, daily (1/D)
     Route: 048
  4. TEGRETOL [Concomitant]
     Dosage: UNK, unknown
     Route: 048

REACTIONS (10)
  - Neuroleptic malignant syndrome [Fatal]
  - Hyperkalaemia [Fatal]
  - Ventricular tachycardia [Fatal]
  - Respiratory failure [Fatal]
  - Metabolic acidosis [Fatal]
  - Dyspnoea [Unknown]
  - Hypotension [Unknown]
  - Hyperglycaemia [Unknown]
  - Cardiac arrest [Unknown]
  - Cyanosis [Unknown]
